FAERS Safety Report 18495861 (Version 1)
Quarter: 2020Q4

REPORT INFORMATION
  Report Type: Spontaneous
  Country: US (occurrence: US)
  Receive Date: 20201112
  Receipt Date: 20201112
  Transmission Date: 20210114
  Serious: Yes (Life-Threatening)
  Sender: FDA-Public Use
  Company Number: None

PATIENT
  Age: 80 Year
  Sex: Male
  Weight: 85 kg

DRUGS (7)
  1. SERTALINE [Concomitant]
     Active Substance: SERTRALINE HYDROCHLORIDE
     Dates: start: 20201108
  2. REMDESIVIR. [Suspect]
     Active Substance: REMDESIVIR
     Indication: COVID-19
     Dosage: ?          OTHER FREQUENCY:ONCE LOADING DOSE;?
     Route: 040
     Dates: start: 20201109, end: 20201109
  3. AZITHROMYCIN ANHYDROUS. [Concomitant]
     Active Substance: AZITHROMYCIN ANHYDROUS
     Dates: start: 20201108
  4. ASPIRIN. [Concomitant]
     Active Substance: ASPIRIN
     Dates: start: 20201108
  5. DEXAMETHASONE. [Concomitant]
     Active Substance: DEXAMETHASONE
     Dates: start: 20201108
  6. CLOPIDOGREL [Concomitant]
     Active Substance: CLOPIDOGREL BISULFATE
     Dates: start: 20201108
  7. METOPROLOL. [Concomitant]
     Active Substance: METOPROLOL
     Dates: start: 20201108

REACTIONS (2)
  - Tachycardia [None]
  - Myocardial infarction [None]

NARRATIVE: CASE EVENT DATE: 20201109
